FAERS Safety Report 16721879 (Version 2)
Quarter: 2019Q3

REPORT INFORMATION
  Report Type: Report from Study
  Country: ES (occurrence: ES)
  Receive Date: 20190820
  Receipt Date: 20190912
  Transmission Date: 20191005
  Serious: Yes (Other)
  Sender: FDA-Public Use
  Company Number: ES-EMD SERONO-E2B_90070091

PATIENT
  Age: 59 Year
  Sex: Female
  Weight: 75 kg

DRUGS (1)
  1. AVELUMAB [Suspect]
     Active Substance: AVELUMAB
     Indication: NON-SMALL CELL LUNG CANCER
     Route: 042
     Dates: start: 20180607

REACTIONS (1)
  - Lichenoid keratosis [Recovered/Resolved]

NARRATIVE: CASE EVENT DATE: 20190813
